FAERS Safety Report 8587995-X (Version None)
Quarter: 2012Q3

REPORT INFORMATION
  Report Type: 
  Country: None (occurrence: None)
  Receive Date: 20120813
  Receipt Date: 20120806
  Transmission Date: 20120928
  Serious: No
  Sender: FDA-Public Use
  Company Number: US-009507513-1208USA002868

PATIENT

DRUGS (2)
  1. NUVARING [Suspect]
     Indication: CONTRACEPTION
     Dosage: UNK
     Route: 067
     Dates: start: 20120701
  2. NUVARING [Suspect]
     Indication: MENSTRUATION IRREGULAR

REACTIONS (4)
  - NERVOUSNESS [None]
  - METRORRHAGIA [None]
  - ANXIETY [None]
  - DEVICE EXPULSION [None]
